FAERS Safety Report 7814815-0 (Version None)
Quarter: 2011Q4

REPORT INFORMATION
  Report Type: 
  Country: None (occurrence: None)
  Receive Date: 20111014
  Receipt Date: 20111004
  Transmission Date: 20120403
  Serious: Yes (Hospitalization, Other)
  Sender: FDA-Public Use
  Company Number: PHHY2011BR90387

PATIENT
  Sex: Male

DRUGS (4)
  1. AMLODIPINE BESYLATE [Suspect]
     Route: 048
  2. ATENOLOL [Suspect]
     Route: 048
  3. ATACAND [Concomitant]
     Route: 048
  4. WARFARIN SODIUM [Concomitant]
     Route: 048

REACTIONS (2)
  - COAGULOPATHY [None]
  - CEREBROVASCULAR ACCIDENT [None]
